FAERS Safety Report 22341023 (Version 4)
Quarter: 2023Q4

REPORT INFORMATION
  Report Type: Spontaneous
  Country: DK (occurrence: DK)
  Receive Date: 20230518
  Receipt Date: 20231018
  Transmission Date: 20240110
  Serious: Yes (Hospitalization, Other)
  Sender: FDA-Public Use
  Company Number: DK-002147023-NVSC2023DK113353

PATIENT
  Age: 39 Year
  Sex: Female

DRUGS (1)
  1. KESIMPTA [Suspect]
     Active Substance: OFATUMUMAB
     Indication: Product used for unknown indication
     Dosage: 20 MG
     Route: 065
     Dates: start: 20230331, end: 20230331

REACTIONS (9)
  - Malaise [Unknown]
  - Erythema [Unknown]
  - Throat irritation [Unknown]
  - Blister [Unknown]
  - Swelling face [Recovered/Resolved with Sequelae]
  - Pharyngeal swelling [Recovered/Resolved with Sequelae]
  - Pruritus [Unknown]
  - Urticaria [Unknown]
  - Anaphylactic reaction [Unknown]

NARRATIVE: CASE EVENT DATE: 20230331
